FAERS Safety Report 12896180 (Version 1)
Quarter: 2016Q4

REPORT INFORMATION
  Report Type: Spontaneous
  Country: US (occurrence: US)
  Receive Date: 20161031
  Receipt Date: 20161031
  Transmission Date: 20170207
  Serious: No
  Sender: FDA-Public Use
  Company Number: US-JAZZ-2016-US-016100

PATIENT
  Sex: Female

DRUGS (33)
  1. PRAMIPEXOLE. [Concomitant]
     Active Substance: PRAMIPEXOLE
  2. HYDROCODONE BITARTRATE AND ACETAMINOPHEN [Concomitant]
     Active Substance: ACETAMINOPHEN\HYDROCODONE BITARTRATE
  3. SINGULAIR [Concomitant]
     Active Substance: MONTELUKAST SODIUM
  4. ABILIFY [Concomitant]
     Active Substance: ARIPIPRAZOLE
  5. MACROBID [Concomitant]
     Active Substance: NITROFURANTOIN\NITROFURANTOIN MONOHYDRATE
  6. PRIMIDONE. [Concomitant]
     Active Substance: PRIMIDONE
  7. SIMVASTATIN. [Concomitant]
     Active Substance: SIMVASTATIN
  8. CELEXA [Concomitant]
     Active Substance: CITALOPRAM HYDROBROMIDE
  9. VENTOLIN HFA [Concomitant]
     Active Substance: ALBUTEROL SULFATE
  10. BUPROPION HCL [Concomitant]
     Active Substance: BUPROPION HYDROCHLORIDE
  11. SYMBICORT [Concomitant]
     Active Substance: BUDESONIDE\FORMOTEROL FUMARATE DIHYDRATE
  12. NEXIUM [Concomitant]
     Active Substance: ESOMEPRAZOLE MAGNESIUM
  13. XYREM [Suspect]
     Active Substance: SODIUM OXYBATE
     Dosage: DOSE ADJUSTMENTS
     Route: 048
     Dates: start: 201101, end: 201407
  14. WELLBUTRIN [Concomitant]
     Active Substance: BUPROPION HYDROCHLORIDE
  15. PROVIGIL [Concomitant]
     Active Substance: MODAFINIL
  16. FLUTICASONE PROPIONATE. [Concomitant]
     Active Substance: FLUTICASONE PROPIONATE
  17. SKELAXIN [Concomitant]
     Active Substance: METAXALONE
  18. VITAMINS A + D [Concomitant]
  19. XYREM [Suspect]
     Active Substance: SODIUM OXYBATE
     Indication: NARCOLEPSY
     Dosage: 2.25 G, BID
     Route: 048
     Dates: start: 201101, end: 201101
  20. XYREM [Suspect]
     Active Substance: SODIUM OXYBATE
     Dosage: 3 G, BID
     Route: 048
     Dates: start: 201407
  21. NUVIGIL [Concomitant]
     Active Substance: ARMODAFINIL
  22. CETIRIZINE HCL [Concomitant]
     Active Substance: CETIRIZINE HYDROCHLORIDE
  23. PREDNISONE. [Concomitant]
     Active Substance: PREDNISONE
  24. KLONOPIN [Concomitant]
     Active Substance: CLONAZEPAM
  25. CYMBALTA [Concomitant]
     Active Substance: DULOXETINE HYDROCHLORIDE
  26. OXYCODONE HYDROCHLORIDE. [Concomitant]
     Active Substance: OXYCODONE HYDROCHLORIDE
  27. PREMARIN [Concomitant]
     Active Substance: ESTROGENS, CONJUGATED
  28. RESTASIS [Concomitant]
     Active Substance: CYCLOSPORINE
  29. IBUPROFEN. [Concomitant]
     Active Substance: IBUPROFEN
  30. AMOXICILLIN. [Concomitant]
     Active Substance: AMOXICILLIN
  31. BETHANECHOL [Concomitant]
     Active Substance: BETHANECHOL
  32. ACTONEL [Concomitant]
     Active Substance: RISEDRONATE SODIUM
  33. MAGNESIUM CHLORIDE. [Concomitant]
     Active Substance: MAGNESIUM CHLORIDE

REACTIONS (1)
  - Tremor [Not Recovered/Not Resolved]
